FAERS Safety Report 7055720-X (Version None)
Quarter: 2010Q4

REPORT INFORMATION
  Report Type: 
  Country: None (occurrence: None)
  Receive Date: 20101021
  Receipt Date: 20101013
  Transmission Date: 20110411
  Serious: Yes (Hospitalization)
  Sender: FDA-Public Use
  Company Number: US-ROXANE LABORATORIES, INC.-2010-RO-01358RO

PATIENT
  Sex: Female
  Weight: 12 kg

DRUGS (4)
  1. LEVETIRACETAM [Suspect]
     Indication: TONIC CONVULSION
     Route: 048
     Dates: start: 20100801
  2. LEVETIRACETAM [Suspect]
     Route: 048
     Dates: start: 20090701, end: 20100801
  3. KEPPRA [Suspect]
     Indication: TONIC CONVULSION
     Dosage: 7 ML
     Route: 042
  4. PHENOBARBITAL [Suspect]
     Indication: TONIC CONVULSION
     Route: 042
     Dates: start: 20100801

REACTIONS (5)
  - AGITATION [None]
  - CONVULSION [None]
  - DISTURBANCE IN ATTENTION [None]
  - MALAISE [None]
  - SOMNOLENCE [None]
